FAERS Safety Report 10955914 (Version 1)
Quarter: 2015Q1

REPORT INFORMATION
  Report Type: Spontaneous
  Country: US (occurrence: None)
  Receive Date: 20150309
  Receipt Date: 20150309
  Transmission Date: 20150721
  Serious: Yes (Other)
  Sender: FDA-Public Use
  Company Number: A14-0064A

PATIENT
  Age: 11 Year
  Sex: Female

DRUGS (2)
  1. B:MOLD MX 10, ALT, HELMINTHO, FUSARIUM [Suspect]
     Active Substance: ALLERGENIC EXTRACTS
     Indication: IMMUNE SYSTEM DISORDER
     Dates: start: 20141001
  2. A:DF/DP/HORSE [Suspect]
     Active Substance: ALLERGENIC EXTRACTS
     Indication: IMMUNE SYSTEM DISORDER
     Dates: start: 20141001

REACTIONS (3)
  - Sneezing [None]
  - Rhinorrhoea [None]
  - Nasal congestion [None]

NARRATIVE: CASE EVENT DATE: 20141001
